FAERS Safety Report 4380904-9 (Version None)
Quarter: 2004Q2

REPORT INFORMATION
  Report Type: 
  Country: None (occurrence: None)
  Receive Date: 20040616
  Receipt Date: 20040602
  Transmission Date: 20050107
  Serious: Yes (Life-Threatening, Hospitalization)
  Sender: FDA-Public Use
  Company Number: GBS040615033

PATIENT
  Age: 56 Year
  Sex: Female

DRUGS (4)
  1. OLANZAPINE [Suspect]
     Indication: SCHIZOPHRENIA
     Dosage: 10 MG
     Dates: start: 20020101, end: 20040517
  2. CLOMIPRAMINE HCL [Concomitant]
  3. BENDROFLUAZIDE [Concomitant]
  4. ASPIRIN [Concomitant]

REACTIONS (1)
  - CONGESTIVE CARDIOMYOPATHY [None]
